FAERS Safety Report 24377168 (Version 1)
Quarter: 2024Q3

REPORT INFORMATION
  Report Type: Spontaneous
  Country: US (occurrence: None)
  Receive Date: 20240930
  Receipt Date: 20240930
  Transmission Date: 20241016
  Serious: Yes (Other)
  Sender: Alvotech
  Company Number: US-ALVOTECHPMS-2024-ALVOTECHPMS-002337

PATIENT
  Age: 15 Year
  Sex: Female

DRUGS (9)
  1. USTEKINUMAB [Suspect]
     Active Substance: USTEKINUMAB
     Indication: Colitis ulcerative
     Dosage: 390MG INDUCTION, 90MG MAINTENANCE DOSING EVERY 8WEEKS FOR 9MONTHS
  2. INFLIXIMAB [Suspect]
     Active Substance: INFLIXIMAB
     Indication: Colitis ulcerative
     Dosage: REQUIRING ESCALATION TO 10MG/KG?EVERY 4WEEKS
  3. UPADACITINIB [Suspect]
     Active Substance: UPADACITINIB
  4. PREDNISONE [Suspect]
     Active Substance: PREDNISONE
     Indication: Colitis ulcerative
  5. MESALAMINE [Suspect]
     Active Substance: MESALAMINE
     Indication: Colitis ulcerative
  6. CLINDAMYCIN [Concomitant]
     Active Substance: CLINDAMYCIN
  7. RIFAMPIN [Concomitant]
     Active Substance: RIFAMPIN
  8. DAPSONE [Concomitant]
     Active Substance: DAPSONE
     Dosage: ESCALATED TO 50MG TWICE DAILY
  9. USTEKINUMAB [Suspect]
     Active Substance: USTEKINUMAB
     Indication: Hidradenitis
     Dosage: 390MG INDUCTION, 90MG MAINTENANCE DOSING EVERY 8WEEKS FOR 9MONTHS

REACTIONS (1)
  - Drug ineffective [Unknown]
